FAERS Safety Report 12452246 (Version 1)
Quarter: 2016Q2

REPORT INFORMATION
  Report Type: Spontaneous
  Country: FR (occurrence: FR)
  Receive Date: 20160609
  Receipt Date: 20160609
  Transmission Date: 20160815
  Serious: Yes (Life-Threatening)
  Sender: FDA-Public Use
  Company Number: FR-TEVA-664883ISR

PATIENT
  Age: 43 Year
  Sex: Female
  Weight: 134 kg

DRUGS (7)
  1. VOLTARENE LP 75 MG [Concomitant]
     Indication: INTERVERTEBRAL DISC PROTRUSION
     Dosage: 150 MILLIGRAM DAILY;
     Route: 048
     Dates: start: 20160122, end: 20160128
  2. INEXIUM 20 MG [Concomitant]
     Active Substance: ESOMEPRAZOLE
     Dosage: 20 MILLIGRAM DAILY; IN THE EVENING
     Route: 048
  3. MELATONINE [Concomitant]
     Active Substance: MELATONIN
     Dosage: 3 GRAM DAILY; IN THE EVENING
     Route: 048
  4. IMOVANE [Concomitant]
     Active Substance: ZOPICLONE
     Dosage: 7.5 MILLIGRAM DAILY; AT BEDTIME
     Route: 048
  5. SOLUPRED [Concomitant]
     Active Substance: PREDNISOLONE
     Route: 048
     Dates: start: 20160204, end: 20160208
  6. LEELOO 0.1 MG/0.02 MG [Suspect]
     Active Substance: ETHINYL ESTRADIOL\LEVONORGESTREL
     Indication: CHEMICAL CONTRACEPTION
     Dosage: 1 DOSAGE FORMS DAILY; 1 DOSAGE FORM = 0.02 MG ETHINYLESTRADIOL + 0.1 MG LEVONORGESTREL
     Route: 048
     Dates: start: 2015, end: 20160220
  7. LAMALINE [Concomitant]
     Active Substance: ACETAMINOPHEN\CAFFEINE\OPIUM
     Indication: INTERVERTEBRAL DISC PROTRUSION
     Dates: start: 201601

REACTIONS (3)
  - Aortic thrombosis [Recovering/Resolving]
  - Renal infarct [Recovering/Resolving]
  - Splenic infarction [Recovering/Resolving]

NARRATIVE: CASE EVENT DATE: 20160223
